FAERS Safety Report 15346759 (Version 1)
Quarter: 2018Q3

REPORT INFORMATION
  Report Type: Spontaneous
  Country: US (occurrence: US)
  Receive Date: 20180828
  Receipt Date: 20180828
  Transmission Date: 20181010
  Serious: Yes (Other)
  Sender: FDA-Public Use
  Company Number: None

PATIENT
  Age: 62 Year
  Sex: Female

DRUGS (5)
  1. ENBREL [Suspect]
     Active Substance: ETANERCEPT
     Indication: RHEUMATOID ARTHRITIS
     Route: 058
     Dates: start: 20171101
  2. SUCRALFATE. [Concomitant]
     Active Substance: SUCRALFATE
  3. OXYCODONE [Concomitant]
     Active Substance: OXYCODONE
  4. HUMIRA [Concomitant]
     Active Substance: ADALIMUMAB
     Dates: end: 20171101
  5. OMEPRAZOLE. [Concomitant]
     Active Substance: OMEPRAZOLE

REACTIONS (1)
  - Invasive ductal breast carcinoma [None]
